FAERS Safety Report 22239948 (Version 1)
Quarter: 2023Q2

REPORT INFORMATION
  Report Type: Spontaneous
  Country: IR (occurrence: IR)
  Receive Date: 20230421
  Receipt Date: 20230421
  Transmission Date: 20230722
  Serious: Yes (Other)
  Sender: FDA-Public Use
  Company Number: IR-BAYER-2023A048458

PATIENT
  Age: 39 Year
  Sex: Female

DRUGS (3)
  1. BETAFERON [Suspect]
     Active Substance: INTERFERON BETA-1B
     Indication: Multiple sclerosis
     Dosage: ONCE WEEKLY
     Dates: start: 2007, end: 2012
  2. BETAFERON [Suspect]
     Active Substance: INTERFERON BETA-1B
     Indication: Multiple sclerosis
     Dosage: UNK, QOD
     Dates: start: 2012, end: 2016
  3. RITUXIMAB [Suspect]
     Active Substance: RITUXIMAB
     Dosage: 1GR EVERY 6 MONTHS

REACTIONS (3)
  - Psoriasis [None]
  - Major depression [None]
  - Mental disorder [None]
